FAERS Safety Report 22908812 (Version 2)
Quarter: 2024Q1

REPORT INFORMATION
  Report Type: Spontaneous
  Country: PT (occurrence: PT)
  Receive Date: 20230905
  Receipt Date: 20240304
  Transmission Date: 20240410
  Serious: Yes (Hospitalization, Other)
  Sender: FDA-Public Use
  Company Number: PT-Zentiva-2023-ZT-016248

PATIENT

DRUGS (3)
  1. UMECLIDINIUM BROMIDE\VILANTEROL TRIFENATATE [Suspect]
     Active Substance: UMECLIDINIUM BROMIDE\VILANTEROL TRIFENATATE
     Indication: Hypersensitivity pneumonitis
     Dosage: 1 DF, QD (55/22 ?G)
     Route: 065
  2. PREDNISOLONE [Suspect]
     Active Substance: PREDNISOLONE
     Indication: Hypersensitivity pneumonitis
     Dosage: 5 MG, QD
     Route: 065
  3. OMEPRAZOLE [Suspect]
     Active Substance: OMEPRAZOLE
     Indication: Product used for unknown indication
     Dosage: UNK
     Route: 065

REACTIONS (11)
  - Cutaneous vasculitis [Unknown]
  - Hypoxia [Unknown]
  - Palpable purpura [Unknown]
  - Henoch-Schonlein purpura [Unknown]
  - Cough [Unknown]
  - Tachypnoea [Unknown]
  - Leukocytosis [Unknown]
  - Neutrophilia [Unknown]
  - Diarrhoea [Unknown]
  - Tracheobronchitis [Unknown]
  - Skin lesion [Unknown]
